FAERS Safety Report 16018104 (Version 1)
Quarter: 2019Q1

REPORT INFORMATION
  Report Type: Spontaneous
  Country: US (occurrence: US)
  Receive Date: 20190228
  Receipt Date: 20190228
  Transmission Date: 20190418
  Serious: Yes (Other)
  Sender: FDA-Public Use
  Company Number: None

PATIENT
  Age: 26 Year
  Sex: Female
  Weight: 53.7 kg

DRUGS (9)
  1. MESALAMINE 1.2 GM, 2 TABS BY MOUTH 2 TIMES/DAY [Concomitant]
  2. PANTOPRAZOLE 40 MG BY MOUTH 2 TIMES/DAY [Concomitant]
  3. ACETAMINOPHEN, 650 MG EVERY 4 HOURS AS NEEDED FOR PAIN [Concomitant]
  4. FLUOCINONIDE 0.05%, APPLY TOPICALLY AS INSTRUCTED [Concomitant]
  5. ALBUTEROL INHALER, USE 2 PUFFS BY INHALATION EVERY 6 HOURS AS NEEDED [Concomitant]
  6. MULTIVITIAMIN WITH MINERALS, 1 TAB BY MOUTH DAILY [Concomitant]
  7. PROBIOTIC 1 CAPSULE BY MOUTH DAILY [Concomitant]
  8. HUMIRA [Suspect]
     Active Substance: ADALIMUMAB
     Indication: CROHN^S DISEASE
     Dosage: ?          OTHER FREQUENCY:EVERY 14 DAYS;?
     Route: 058
     Dates: start: 20180207, end: 20180719
  9. ESCITALOPRAM 5 MG BY MOUTH DAILY [Concomitant]

REACTIONS (2)
  - Hypoglycaemia [None]
  - Eczema [None]

NARRATIVE: CASE EVENT DATE: 20180608
